FAERS Safety Report 10086510 (Version 1)
Quarter: 2014Q2

REPORT INFORMATION
  Report Type: Spontaneous
  Country: US (occurrence: None)
  Receive Date: 20140417
  Receipt Date: 20140417
  Transmission Date: 20141212
  Serious: No
  Sender: FDA-Public Use
  Company Number: None

PATIENT
  Age: 61 Year
  Sex: Male
  Weight: 118.4 kg

DRUGS (1)
  1. SENNA [Suspect]
     Indication: CONSTIPATION
     Route: 048
     Dates: start: 20130611, end: 20140402

REACTIONS (1)
  - Rectal haemorrhage [None]
